FAERS Safety Report 4347383-9 (Version None)
Quarter: 2004Q2

REPORT INFORMATION
  Report Type: 
  Country: None (occurrence: None)
  Receive Date: 20040426
  Receipt Date: 20040426
  Transmission Date: 20050107
  Serious: Yes (Life-Threatening)
  Sender: FDA-Public Use
  Company Number: None

PATIENT
  Age: 32 Year
  Sex: Female
  Weight: 53.5244 kg

DRUGS (1)
  1. CELEXA [Suspect]
     Indication: DEPRESSION
     Dosage: 1/2 PILL ONCE/DAY ORAL
     Route: 048
     Dates: start: 19990810, end: 19990812

REACTIONS (6)
  - AGORAPHOBIA [None]
  - ANGER [None]
  - DEPRESSION [None]
  - PANIC ATTACK [None]
  - SUICIDAL IDEATION [None]
  - TREATMENT NONCOMPLIANCE [None]
